FAERS Safety Report 12264136 (Version 1)
Quarter: 2016Q2

REPORT INFORMATION
  Report Type: Spontaneous
  Country: US (occurrence: US)
  Receive Date: 20160413
  Receipt Date: 20160413
  Transmission Date: 20160815
  Serious: No
  Sender: FDA-Public Use
  Company Number: US-JNJFOC-20160321605

PATIENT
  Age: 2 Month
  Sex: Female
  Weight: 4.99 kg

DRUGS (2)
  1. MOTRIN INFANTS [Suspect]
     Active Substance: IBUPROFEN
     Route: 048
  2. MOTRIN INFANTS [Suspect]
     Active Substance: IBUPROFEN
     Indication: INJECTION SITE PAIN
     Dosage: LESS THAN 1/4 TSP, ONCE
     Route: 048
     Dates: start: 20160322, end: 20160322

REACTIONS (3)
  - Scratch [Unknown]
  - Oral discomfort [Unknown]
  - Regurgitation [Unknown]

NARRATIVE: CASE EVENT DATE: 20160322
